FAERS Safety Report 5525204-6 (Version None)
Quarter: 2007Q4

REPORT INFORMATION
  Report Type: 
  Country: None (occurrence: None)
  Receive Date: 20071126
  Receipt Date: 20071121
  Transmission Date: 20080405
  Serious: Yes (Hospitalization)
  Sender: FDA-Public Use
  Company Number: JP-BRISTOL-MYERS SQUIBB COMPANY-13991732

PATIENT
  Age: 57 Year
  Sex: Male

DRUGS (1)
  1. KENACORT [Suspect]
     Indication: MACULAR OEDEMA
     Route: 031
     Dates: start: 20060901, end: 20070901

REACTIONS (2)
  - ENDOPHTHALMITIS [None]
  - EYE ABSCESS [None]
